FAERS Safety Report 5851052-3 (Version None)
Quarter: 2008Q3

REPORT INFORMATION
  Report Type: 
  Country: None (occurrence: None)
  Receive Date: 20080820
  Receipt Date: 20080811
  Transmission Date: 20090109
  Serious: Yes (Death, Life-Threatening, Other)
  Sender: FDA-Public Use
  Company Number: GB-JNJFOC-20080406263

PATIENT
  Sex: Female
  Weight: 54 kg

DRUGS (7)
  1. REMICADE [Suspect]
     Indication: RHEUMATOID ARTHRITIS
     Route: 042
  2. METHOTREXATE SODIUM [Concomitant]
  3. CELEBREX [Concomitant]
  4. FOLIC ACID [Concomitant]
  5. THYROXINE [Concomitant]
  6. AZATHIOPRINE [Concomitant]
  7. CYCLOSPORINE [Concomitant]

REACTIONS (3)
  - MENINGITIS [None]
  - SEPSIS [None]
  - SINUSITIS [None]
